FAERS Safety Report 7153750-0 (Version None)
Quarter: 2010Q4

REPORT INFORMATION
  Report Type: 
  Country: None (occurrence: None)
  Receive Date: 20101130
  Receipt Date: 20101115
  Transmission Date: 20110411
  Serious: Yes (Other)
  Sender: FDA-Public Use
  Company Number: 2010-4009

PATIENT
  Age: 34 Year
  Sex: Female

DRUGS (9)
  1. DYSPORT [Suspect]
     Indication: OFF LABEL USE
     Dosage: 66 UNITS (66 UNITS,SINGLE CYCLE),PARENTERAL
     Route: 051
     Dates: start: 20101113, end: 20101113
  2. DYSPORT [Suspect]
     Indication: SKIN COSMETIC PROCEDURE
     Dosage: 66 UNITS (66 UNITS,SINGLE CYCLE),PARENTERAL
     Route: 051
     Dates: start: 20101113, end: 20101113
  3. DYSPORT [Suspect]
     Indication: SKIN WRINKLING
     Dosage: 66 UNITS (66 UNITS,SINGLE CYCLE),PARENTERAL
     Route: 051
     Dates: start: 20101113, end: 20101113
  4. RESTYLANE-L(HYALURONIC ACID) [Suspect]
     Indication: SKIN COSMETIC PROCEDURE
     Dosage: 1 ML (1 ML,SINGLE CYCLE),PARENTERAL
     Route: 051
     Dates: start: 20101113, end: 20101113
  5. MULTIVITAMIN [Concomitant]
  6. MAXALT (RIZATRIPTAN) [Concomitant]
  7. BETACAINE (ALL OTHER THERAPEUTIC PRODUCTS) [Concomitant]
  8. LIDOCAINE [Concomitant]
  9. TETRACAINE (TETRACAINE) [Concomitant]

REACTIONS (2)
  - DRUG HYPERSENSITIVITY [None]
  - OFF LABEL USE [None]
